FAERS Safety Report 20858335 (Version 2)
Quarter: 2022Q3

REPORT INFORMATION
  Report Type: Spontaneous
  Country: US (occurrence: US)
  Receive Date: 20220521
  Receipt Date: 20220908
  Transmission Date: 20221027
  Serious: No
  Sender: FDA-Public Use
  Company Number: US-BRISTOL-MYERS SQUIBB COMPANY-2022-031294

PATIENT
  Age: 70 Year
  Sex: Female
  Weight: 53.98 kg

DRUGS (2)
  1. REVLIMID [Suspect]
     Active Substance: LENALIDOMIDE
     Indication: Plasma cell myeloma
     Route: 048
     Dates: start: 20200707
  2. REVLIMID [Suspect]
     Active Substance: LENALIDOMIDE
     Dosage: D1-21 Q 28 DAYS
     Route: 048
     Dates: start: 20220304

REACTIONS (3)
  - Laboratory test abnormal [Unknown]
  - Anaemia [Unknown]
  - Fatigue [Recovering/Resolving]
